FAERS Safety Report 20962305 (Version 1)
Quarter: 2022Q2

REPORT INFORMATION
  Report Type: Report from Study
  Country: MX (occurrence: MX)
  Receive Date: 20220615
  Receipt Date: 20220615
  Transmission Date: 20220721
  Serious: Yes (Other)
  Sender: FDA-Public Use
  Company Number: MX-NOVARTISPH-NVSC2022MX137291

PATIENT
  Age: 79 Year
  Sex: Female

DRUGS (1)
  1. EXFORGE [Suspect]
     Active Substance: AMLODIPINE BESYLATE\VALSARTAN
     Indication: Cardiac disorder
     Dosage: 1 DOSAGE FORM, QD (BY MOUTH)
     Route: 048

REACTIONS (6)
  - Tongue cancer metastatic [Not Recovered/Not Resolved]
  - Eating disorder [Not Recovered/Not Resolved]
  - Metastatic neoplasm [Unknown]
  - Cerebral infarction [Unknown]
  - Dental plaque [Unknown]
  - Inappropriate schedule of product administration [Not Recovered/Not Resolved]

NARRATIVE: CASE EVENT DATE: 20211224
